FAERS Safety Report 7660107-2 (Version None)
Quarter: 2011Q3

REPORT INFORMATION
  Report Type: 
  Country: None (occurrence: None)
  Receive Date: 20110805
  Receipt Date: 20110725
  Transmission Date: 20111222
  Serious: Yes (Other)
  Sender: FDA-Public Use
  Company Number: PHHY2011JP63574

PATIENT
  Age: 68 Year
  Sex: Male

DRUGS (1)
  1. CYCLOSPORINE [Suspect]
     Dosage: UNK UKN, UNK
     Route: 048
     Dates: start: 20010101, end: 20010101

REACTIONS (6)
  - RENAL IMPAIRMENT [None]
  - EOSINOPHIL COUNT INCREASED [None]
  - WEIGHT DECREASED [None]
  - DERMATITIS EXFOLIATIVE [None]
  - LYMPHOCYTE MORPHOLOGY ABNORMAL [None]
  - LYMPHADENOPATHY [None]
